FAERS Safety Report 16048956 (Version 1)
Quarter: 2019Q1

REPORT INFORMATION
  Report Type: Other
  Country: US (occurrence: US)
  Receive Date: 20190307
  Receipt Date: 20190307
  Transmission Date: 20190418
  Serious: Yes (Hospitalization)
  Sender: FDA-Public Use
  Company Number: US-ALSI-201900092

PATIENT
  Age: 32 Year
  Sex: Male

DRUGS (1)
  1. NITROUS OXIDE. [Suspect]
     Active Substance: NITROUS OXIDE
     Indication: DRUG ABUSE
     Route: 055

REACTIONS (4)
  - Cerebral artery occlusion [Recovering/Resolving]
  - Hyperhomocysteinaemia [Unknown]
  - Ischaemic stroke [Recovering/Resolving]
  - Drug abuse [Unknown]
